FAERS Safety Report 8092000-8 (Version None)
Quarter: 2012Q1

REPORT INFORMATION
  Report Type: 
  Country: None (occurrence: None)
  Receive Date: 20120131
  Receipt Date: 20120126
  Transmission Date: 20120608
  Serious: Yes (Hospitalization, Other)
  Sender: FDA-Public Use
  Company Number: US-JNJFOC-20110505332

PATIENT
  Sex: Male
  Weight: 102.06 kg

DRUGS (16)
  1. LEVAQUIN [Suspect]
     Route: 048
     Dates: start: 20101101, end: 20101101
  2. LEVAQUIN [Suspect]
     Route: 048
  3. LEVAQUIN [Suspect]
     Route: 048
     Dates: start: 20110301, end: 20110301
  4. LEVAQUIN [Suspect]
     Route: 048
     Dates: start: 20110301, end: 20110301
  5. LEVAQUIN [Suspect]
     Route: 048
     Dates: start: 20110101, end: 20110101
  6. LEVAQUIN [Suspect]
     Route: 048
     Dates: start: 20110201, end: 20110201
  7. LEVAQUIN [Suspect]
     Route: 048
     Dates: start: 20101201, end: 20101201
  8. LEVAQUIN [Suspect]
     Indication: PNEUMONIA
     Route: 048
  9. LEVAQUIN [Suspect]
     Route: 048
     Dates: start: 20020101, end: 20020101
  10. ALL OTHER THERAPEUTIC PRODUCTS [Concomitant]
     Indication: PRODUCT USED FOR UNKNOWN INDICATION
     Route: 065
  11. DIURETIC (NAME UNSPECIFIED) [Concomitant]
     Route: 065
  12. LEVAQUIN [Suspect]
     Indication: BRONCHITIS
     Route: 048
     Dates: start: 20110201, end: 20110201
  13. LEVAQUIN [Suspect]
     Route: 048
     Dates: start: 20110101, end: 20110101
  14. LEVAQUIN [Suspect]
     Route: 048
     Dates: start: 20020101, end: 20020101
  15. LEVAQUIN [Suspect]
     Route: 048
     Dates: start: 20101101, end: 20101101
  16. LEVAQUIN [Suspect]
     Route: 048
     Dates: start: 20101201, end: 20101201

REACTIONS (7)
  - NASOPHARYNGITIS [None]
  - CORONARY ARTERY OCCLUSION [None]
  - HYPOAESTHESIA [None]
  - INFLUENZA [None]
  - NEUROPATHY PERIPHERAL [None]
  - BRONCHITIS [None]
  - CARDIAC DISORDER [None]
